FAERS Safety Report 15281828 (Version 1)
Quarter: 2018Q3

REPORT INFORMATION
  Report Type: Spontaneous
  Country: US (occurrence: US)
  Receive Date: 20180815
  Receipt Date: 20180815
  Transmission Date: 20181010
  Serious: Yes (Other)
  Sender: FDA-Public Use
  Company Number: US-PFIZER INC-2018326238

PATIENT
  Age: 59 Year
  Sex: Male

DRUGS (1)
  1. GENOTROPIN [Suspect]
     Active Substance: SOMATROPIN
     Dosage: 1 MG, DAILY
     Dates: start: 2010

REACTIONS (16)
  - Blood urea decreased [Unknown]
  - Blood thyroid stimulating hormone decreased [Unknown]
  - Red blood cell count decreased [Unknown]
  - Rash [Unknown]
  - Cognitive disorder [Unknown]
  - Feeling of body temperature change [Unknown]
  - Thyroxine decreased [Unknown]
  - Blood testosterone decreased [Unknown]
  - Meningioma [Unknown]
  - Diarrhoea [Unknown]
  - Blood sodium decreased [Unknown]
  - Fatigue [Not Recovered/Not Resolved]
  - Haemoglobin decreased [Unknown]
  - Insulin-like growth factor decreased [Unknown]
  - Haematocrit decreased [Unknown]
  - Red cell distribution width increased [Unknown]

NARRATIVE: CASE EVENT DATE: 20180511
